FAERS Safety Report 7292124-9 (Version None)
Quarter: 2011Q1

REPORT INFORMATION
  Report Type: 
  Country: None (occurrence: None)
  Receive Date: 20110215
  Receipt Date: 20110131
  Transmission Date: 20110831
  Serious: No
  Sender: FDA-Public Use
  Company Number: US-BIOGENIDEC-2011BI004658

PATIENT
  Sex: Female

DRUGS (2)
  1. TYSABRI [Suspect]
     Indication: MULTIPLE SCLEROSIS
     Route: 042
     Dates: start: 20100607
  2. TYSABRI [Suspect]
     Route: 042
     Dates: start: 20080421, end: 20100126

REACTIONS (8)
  - GINGIVAL INFECTION [None]
  - DECREASED APPETITE [None]
  - PAIN IN EXTREMITY [None]
  - ASTHENIA [None]
  - WEIGHT GAIN POOR [None]
  - DEPRESSED MOOD [None]
  - MEMORY IMPAIRMENT [None]
  - DECUBITUS ULCER [None]
